FAERS Safety Report 6537848-3 (Version None)
Quarter: 2010Q1

REPORT INFORMATION
  Report Type: 
  Country: None (occurrence: None)
  Receive Date: 20100114
  Receipt Date: 20100106
  Transmission Date: 20100710
  Serious: Yes (Hospitalization)
  Sender: FDA-Public Use
  Company Number: JP-AMGEN-US385384

PATIENT
  Age: 74 Year
  Sex: Male

DRUGS (3)
  1. ENBREL [Suspect]
     Indication: RHEUMATOID ARTHRITIS
     Dosage: UNSPECIFIED
     Route: 058
     Dates: start: 20080101
  2. PREDNISOLONE [Suspect]
     Indication: RHEUMATOID ARTHRITIS
     Route: 065
     Dates: start: 20080101
  3. PREDNISOLONE [Suspect]
     Dosage: REDUCED TO 5 MG IN 4 WEEKS

REACTIONS (4)
  - CYSTITIS [None]
  - ENTEROBACTER INFECTION [None]
  - MASS [None]
  - URACHAL ABNORMALITY [None]
